FAERS Safety Report 6214644-8 (Version None)
Quarter: 2009Q2

REPORT INFORMATION
  Report Type: 
  Country: None (occurrence: None)
  Receive Date: 20090604
  Receipt Date: 20090525
  Transmission Date: 20091009
  Serious: Yes (Life-Threatening, Hospitalization, Other)
  Sender: FDA-Public Use
  Company Number: DE-PFIZER INC-2009189429

PATIENT
  Age: 49 Year

DRUGS (4)
  1. LYRICA [Suspect]
     Indication: SCHIZOPHRENIA, PARANOID TYPE
     Dosage: 200 MG, 1X/DAY
     Route: 048
  2. CLOZAPINE [Concomitant]
     Indication: SCHIZOPHRENIA, PARANOID TYPE
     Dosage: UNK
     Route: 048
  3. HALDOL [Concomitant]
     Indication: SCHIZOPHRENIA, PARANOID TYPE
     Dosage: 10 MG, 1X/DAY
     Route: 048
  4. TAVOR [Concomitant]
     Indication: SCHIZOPHRENIA, PARANOID TYPE
     Dosage: 4 MG, 1X/DAY
     Route: 048

REACTIONS (2)
  - NEUROLEPTIC MALIGNANT SYNDROME [None]
  - RHABDOMYOLYSIS [None]
